FAERS Safety Report 4347413-4 (Version None)
Quarter: 2004Q1

REPORT INFORMATION
  Report Type: 
  Country: None (occurrence: None)
  Receive Date: 20040319
  Receipt Date: 20031124
  Transmission Date: 20041129
  Serious: No
  Sender: FDA-Public Use
  Company Number: US-JNJFOC-20031200130

PATIENT
  Age: 22 Year
  Sex: Female
  Weight: 66.2252 kg

DRUGS (4)
  1. ORTHO EVRA [Suspect]
     Indication: CONTRACEPTION
     Dosage: 1 DOSE(S), 3 IN 4 WEEK, TRANSDERMAL
     Route: 062
     Dates: start: 20030831, end: 20031124
  2. IMITREX [Concomitant]
  3. GABITRIL [Concomitant]
  4. BOTOX INJECTION (BOTULINUM TOXIN TYPE A) [Concomitant]

REACTIONS (3)
  - FALL [None]
  - HEADACHE [None]
  - MEMORY IMPAIRMENT [None]
